FAERS Safety Report 23621321 (Version 2)
Quarter: 2024Q2

REPORT INFORMATION
  Report Type: Report from Study
  Country: US (occurrence: US)
  Receive Date: 20240312
  Receipt Date: 20240408
  Transmission Date: 20240716
  Serious: No
  Sender: FDA-Public Use
  Company Number: US-ACADIA PHARMACEUTICALS INC.-ACA-2024-TRF-000791

PATIENT
  Age: 8 Year
  Sex: Female

DRUGS (4)
  1. DAYBUE [Suspect]
     Active Substance: TROFINETIDE
     Indication: Rett syndrome
     Dosage: 2 MILLILITER, BID
     Route: 048
     Dates: start: 20240106
  2. DAYBUE [Suspect]
     Active Substance: TROFINETIDE
     Dosage: 4 1/2 ML BID
     Route: 048
     Dates: end: 202402
  3. VALPROIC ACID [Concomitant]
     Active Substance: VALPROIC ACID
     Dosage: 5 ML 3 TIMES A DAY
  4. GUANFACINE [Concomitant]
     Active Substance: GUANFACINE
     Dosage: 1/2 3 TIMES A DAY

REACTIONS (8)
  - Aggression [Unknown]
  - Prescribed underdose [Not Recovered/Not Resolved]
  - Screaming [Not Recovered/Not Resolved]
  - Hypophagia [Not Recovered/Not Resolved]
  - Abdominal pain upper [Not Recovered/Not Resolved]
  - Behaviour disorder [Recovered/Resolved]
  - Crying [Not Recovered/Not Resolved]
  - Diarrhoea [Not Recovered/Not Resolved]

NARRATIVE: CASE EVENT DATE: 20240101
